FAERS Safety Report 6369513-X (Version None)
Quarter: 2009Q3

REPORT INFORMATION
  Report Type: 
  Country: None (occurrence: None)
  Receive Date: 20090923
  Receipt Date: 20090917
  Transmission Date: 20100115
  Serious: Yes (Other)
  Sender: FDA-Public Use
  Company Number: ZA-ALLERGAN-0912964US

PATIENT
  Age: 63 Year
  Sex: Male

DRUGS (1)
  1. BETAGAN [Suspect]
     Indication: GLAUCOMA
     Dosage: UNK
     Dates: start: 19880101, end: 20060101

REACTIONS (1)
  - ATRIAL FIBRILLATION [None]
